FAERS Safety Report 11963379 (Version 1)
Quarter: 2016Q1

REPORT INFORMATION
  Report Type: Spontaneous
  Country: US (occurrence: None)
  Receive Date: 20160121
  Receipt Date: 20160121
  Transmission Date: 20160526
  Serious: Yes (Congenital Anomaly)
  Sender: FDA-Public Use
  Company Number: None

PATIENT
  Age: 7 Day
  Sex: Male
  Weight: 3.86 kg

DRUGS (2)
  1. DICLEGIS [Suspect]
     Active Substance: DOXYLAMINE SUCCINATE\PYRIDOXINE HYDROCHLORIDE
     Indication: PREGNANCY
  2. DICLEGIS [Suspect]
     Active Substance: DOXYLAMINE SUCCINATE\PYRIDOXINE HYDROCHLORIDE
     Indication: PROPHYLAXIS OF NAUSEA AND VOMITING

REACTIONS (2)
  - Craniosynostosis [None]
  - Foetal exposure during pregnancy [None]

NARRATIVE: CASE EVENT DATE: 20150807
